FAERS Safety Report 7725959-6 (Version None)
Quarter: 2011Q3

REPORT INFORMATION
  Report Type: 
  Country: None (occurrence: None)
  Receive Date: 20110902
  Receipt Date: 20110822
  Transmission Date: 20111222
  Serious: Yes (Other)
  Sender: FDA-Public Use
  Company Number: US-ELI_LILLY_AND_COMPANY-US201104005970

PATIENT
  Sex: Female

DRUGS (11)
  1. NEXIUM [Concomitant]
     Dosage: 40 MG, UNK
  2. CRESTOR [Concomitant]
     Dosage: 10 MG, UNK
  3. FORTEO [Suspect]
     Dosage: 20 UG, QD
     Route: 058
  4. INSULIN [Concomitant]
     Dosage: UNK
     Dates: start: 20110726
  5. XANAX [Concomitant]
     Dosage: 1 MG, UNK
     Dates: start: 20110601
  6. FORTEO [Suspect]
     Dosage: 20 UG, QD
     Route: 058
  7. ESTRADIOL [Concomitant]
     Dosage: 1 MG, UNK
  8. FORTEO [Suspect]
     Indication: OSTEOPOROSIS
     Dosage: 20 UG, QD
     Route: 058
     Dates: start: 20110210
  9. FORTEO [Suspect]
     Dosage: 20 UG, QD
     Route: 058
  10. FORTEO [Suspect]
     Dosage: 20 UG, QD
     Route: 058
  11. FLOMAX [Concomitant]
     Dosage: 0.4 MG, QD
     Dates: start: 20110601

REACTIONS (12)
  - WEIGHT INCREASED [None]
  - INJECTION SITE PAIN [None]
  - INJECTION SITE HAEMATOMA [None]
  - MUSCULAR WEAKNESS [None]
  - OVERDOSE [None]
  - NERVOUSNESS [None]
  - GAIT DISTURBANCE [None]
  - JOINT SWELLING [None]
  - VITAMIN D DECREASED [None]
  - BLOOD GLUCOSE INCREASED [None]
  - PAIN IN EXTREMITY [None]
  - OEDEMA PERIPHERAL [None]
